FAERS Safety Report 23543938 (Version 1)
Quarter: 2024Q1

REPORT INFORMATION
  Report Type: Spontaneous
  Country: US (occurrence: None)
  Receive Date: 20240216
  Receipt Date: 20240216
  Transmission Date: 20240409
  Serious: Yes (Other)
  Sender: FDA-Public Use
  Company Number: None

PATIENT
  Age: 37 Year
  Sex: Male
  Weight: 89.4 kg

DRUGS (2)
  1. LEUCOVORIN CALCIUM [Suspect]
     Active Substance: LEUCOVORIN CALCIUM
     Indication: Oesophageal adenocarcinoma
     Dosage: FREQUENCY : EVERY OTHER WEEK;?
     Route: 041
  2. LEUCOVORIN CALCIUM [Suspect]
     Active Substance: LEUCOVORIN CALCIUM
     Indication: Oesophageal adenocarcinoma
     Dosage: OTHER FREQUENCY : 14 DAYS;?
     Route: 041

REACTIONS (8)
  - Hypersensitivity [None]
  - Nausea [None]
  - Vomiting [None]
  - Chest discomfort [None]
  - Chills [None]
  - Flushing [None]
  - Infusion related reaction [None]
  - Neutrophil count decreased [None]
